FAERS Safety Report 14023970 (Version 5)
Quarter: 2020Q1

REPORT INFORMATION
  Report Type: Report from Study
  Country: US (occurrence: US)
  Receive Date: 20170928
  Receipt Date: 20200124
  Transmission Date: 20200409
  Serious: No
  Sender: FDA-Public Use
  Company Number: US-SA-2016SA229733

PATIENT
  Age: 48 Year
  Sex: Female

DRUGS (3)
  1. TERIFLUNOMIDE. [Suspect]
     Active Substance: TERIFLUNOMIDE
     Indication: MULTIPLE SCLEROSIS
     Dosage: 14 MG, QD
     Route: 048
     Dates: start: 20160617
  2. IBUPROFEN. [Concomitant]
     Active Substance: IBUPROFEN
  3. TRUVADA [Concomitant]
     Active Substance: EMTRICITABINE\TENOFOVIR DISOPROXIL FUMARATE

REACTIONS (7)
  - Vitamin D decreased [Unknown]
  - Vitreous floaters [Unknown]
  - Hypertension [Unknown]
  - Pain [Unknown]
  - Hot flush [Unknown]
  - Headache [Unknown]
  - Hysterectomy [Unknown]

NARRATIVE: CASE EVENT DATE: 20161209
